FAERS Safety Report 13053724 (Version 1)
Quarter: 2016Q4

REPORT INFORMATION
  Report Type: Spontaneous
  Country: US (occurrence: US)
  Receive Date: 20161222
  Receipt Date: 20161222
  Transmission Date: 20170207
  Serious: No
  Sender: FDA-Public Use
  Company Number: US-BAYER-2016-242531

PATIENT
  Age: 83 Year
  Sex: Female
  Weight: 85.99 kg

DRUGS (1)
  1. MIRALAX [Suspect]
     Active Substance: POLYETHYLENE GLYCOL 3350
     Indication: GASTROINTESTINAL DISORDER
     Route: 047
     Dates: end: 20161221

REACTIONS (2)
  - Off label use [Unknown]
  - Unevaluable event [Unknown]
